FAERS Safety Report 11169469 (Version 1)
Quarter: 2015Q2

REPORT INFORMATION
  Report Type: Spontaneous
  Country: US (occurrence: US)
  Receive Date: 20150605
  Receipt Date: 20150605
  Transmission Date: 20150821
  Serious: No
  Sender: FDA-Public Use
  Company Number: US-009507513-1505USA014285

PATIENT
  Age: 25 Year
  Sex: Female
  Weight: 170.7 kg

DRUGS (1)
  1. NEXPLANON [Suspect]
     Active Substance: ETONOGESTREL
     Indication: CONTRACEPTION
     Dosage: 1 IMPLANT/EVERY 3 YEARS
     Route: 059
     Dates: start: 201307

REACTIONS (2)
  - Pregnancy with implant contraceptive [Recovered/Resolved]
  - Medical device complication [Unknown]

NARRATIVE: CASE EVENT DATE: 20150522
